FAERS Safety Report 14007061 (Version 1)
Quarter: 2017Q3

REPORT INFORMATION
  Report Type: Spontaneous
  Country: US (occurrence: US)
  Receive Date: 20170923
  Receipt Date: 20170923
  Transmission Date: 20171128
  Serious: Yes (Life-Threatening, Other)
  Sender: FDA-Public Use
  Company Number: None

PATIENT
  Age: 22 Year
  Sex: Female
  Weight: 76.5 kg

DRUGS (4)
  1. G.E. LORAZAPAM 1 MG TABLET [Suspect]
     Active Substance: LORAZEPAM
     Indication: FRONTAL LOBE EPILEPSY
     Dosage: ?          QUANTITY:1 TABLET(S);?
     Route: 048
  2. KEPPRA [Concomitant]
     Active Substance: LEVETIRACETAM
  3. HEATHER [Concomitant]
     Active Substance: NORETHINDRONE
  4. TEGRETOL [Concomitant]
     Active Substance: CARBAMAZEPINE

REACTIONS (2)
  - Thinking abnormal [None]
  - Suicidal ideation [None]

NARRATIVE: CASE EVENT DATE: 20170920
